FAERS Safety Report 13580055 (Version 1)
Quarter: 2017Q2

REPORT INFORMATION
  Report Type: Spontaneous
  Country: US (occurrence: US)
  Receive Date: 20170523
  Receipt Date: 20170523
  Transmission Date: 20170830
  Serious: No
  Sender: FDA-Public Use
  Company Number: None

PATIENT
  Sex: Female

DRUGS (27)
  1. ADDERALL XR [Concomitant]
     Active Substance: AMPHETAMINE ASPARTATE\AMPHETAMINE SULFATE\DEXTROAMPHETAMINE SACCHARATE\DEXTROAMPHETAMINE SULFATE
  2. ONDANSETRON [Concomitant]
     Active Substance: ONDANSETRON
  3. PREDNISOLONE ACETATE. [Concomitant]
     Active Substance: PREDNISOLONE ACETATE
  4. DESMOPRESSIN [Concomitant]
     Active Substance: DESMOPRESSIN
  5. HYOSCYAMINE. [Concomitant]
     Active Substance: HYOSCYAMINE
  6. MIDODRINE [Concomitant]
     Active Substance: MIDODRINE
  7. OXYCODONE [Concomitant]
     Active Substance: OXYCODONE
  8. TRIFLURIDINE. [Concomitant]
     Active Substance: TRIFLURIDINE
  9. CLONAZEPAM. [Concomitant]
     Active Substance: CLONAZEPAM
  10. DIPHENOXYLATE-ATROPINE (LOMOTIL) [Concomitant]
  11. ERGOCALCIFEROL. [Concomitant]
     Active Substance: ERGOCALCIFEROL
  12. HYDROXYCHOLOROQUINE [Concomitant]
  13. L-METHYLFOLATE (DEPLIN) [Concomitant]
  14. ZOLPIDEM [Concomitant]
     Active Substance: ZOLPIDEM\ZOLPIDEM TARTRATE
  15. AMPHETAMINE-DEXTROAMPHETAMINE [Concomitant]
     Active Substance: AMPHETAMINE SULFATE\DEXTROAMPHETAMINE
  16. ATROPINE. [Concomitant]
     Active Substance: ATROPINE
  17. DROXIDOPA (NORTHERA) [Concomitant]
  18. FOLIC ACID. [Concomitant]
     Active Substance: FOLIC ACID
  19. METHOTREXATE PF (RASUVO) [Concomitant]
  20. FUROSEMIDE. [Concomitant]
     Active Substance: FUROSEMIDE
  21. MAGNESIUM [Concomitant]
     Active Substance: MAGNESIUM
  22. MS CONTIN [Concomitant]
     Active Substance: MORPHINE SULFATE
  23. APREMILAST (OTEZLA) [Concomitant]
  24. CHOLECALCIFEROL (VITAMIN D) [Concomitant]
  25. RIBOFLAVIN [Concomitant]
     Active Substance: RIBOFLAVIN
  26. METHOTREXATE. [Suspect]
     Active Substance: METHOTREXATE
  27. SUMATRIPTAN. [Concomitant]
     Active Substance: SUMATRIPTAN

REACTIONS (2)
  - Dyspnoea [None]
  - Syncope [None]
